FAERS Safety Report 9580830 (Version 1)
Quarter: 2013Q4

REPORT INFORMATION
  Report Type: Spontaneous
  Country: US (occurrence: None)
  Receive Date: 20131001
  Receipt Date: 20131001
  Transmission Date: 20140711
  Serious: Yes (Disabling)
  Sender: FDA-Public Use
  Company Number: None

PATIENT
  Age: 48 Year
  Sex: Male
  Weight: 72.58 kg

DRUGS (5)
  1. ZOLOFT [Suspect]
     Indication: ANXIETY
     Dosage: 1 PILL
     Route: 048
     Dates: start: 201210
  2. ZOLOFT [Suspect]
     Indication: SLEEP DISORDER THERAPY
     Dosage: 1 PILL
     Route: 048
     Dates: start: 201210
  3. FLEXERIL [Concomitant]
  4. EXLAX (SENNOSIDES) [Concomitant]
  5. DULCOLAX (BISACODYL) [Concomitant]

REACTIONS (4)
  - Drug hypersensitivity [None]
  - Gastritis [None]
  - Blood disorder [None]
  - Inflammation [None]
